FAERS Safety Report 6829701-2 (Version None)
Quarter: 2010Q3

REPORT INFORMATION
  Report Type: 
  Country: None (occurrence: None)
  Receive Date: 20100709
  Receipt Date: 20070626
  Transmission Date: 20110219
  Serious: No
  Sender: FDA-Public Use
  Company Number: US-PFIZER INC-2007005602

PATIENT
  Sex: Female
  Weight: 72.6 kg

DRUGS (3)
  1. CHANTIX [Suspect]
     Indication: SMOKING CESSATION THERAPY
     Route: 048
     Dates: start: 20070101, end: 20070113
  2. ALL OTHER THERAPEUTIC PRODUCTS [Concomitant]
     Indication: OSTEOPOROSIS
     Route: 048
  3. VITAMIN B-12 [Concomitant]

REACTIONS (7)
  - CHILLS [None]
  - FATIGUE [None]
  - FEELING COLD [None]
  - HYPERSENSITIVITY [None]
  - INFLUENZA [None]
  - LETHARGY [None]
  - SOMNOLENCE [None]
